FAERS Safety Report 13390997 (Version 1)
Quarter: 2017Q1

REPORT INFORMATION
  Report Type: Spontaneous
  Country: US (occurrence: US)
  Receive Date: 20170331
  Receipt Date: 20170331
  Transmission Date: 20170429
  Serious: Yes (Disabling, Other)
  Sender: FDA-Public Use
  Company Number: None

PATIENT
  Age: 79 Year
  Sex: Female
  Weight: 70.37 kg

DRUGS (9)
  1. 81 MG ASPIRIN [Concomitant]
  2. MILK THISTLE [Concomitant]
     Active Substance: MILK THISTLE
  3. ATENOLOL. [Concomitant]
     Active Substance: ATENOLOL
  4. MULTI VITAMIN [Concomitant]
     Active Substance: VITAMINS
  5. ATORVASTATIN CALCIUM. [Suspect]
     Active Substance: ATORVASTATIN CALCIUM
     Indication: BLOOD CHOLESTEROL INCREASED
     Dosage: ?          QUANTITY:/ (BY?;?
     Route: 048
  6. CRANBERRY CAPSULE [Concomitant]
     Active Substance: DIETARY SUPPLEMENT
  7. COQ10 [Concomitant]
     Active Substance: UBIDECARENONE
  8. CALCIUM [Concomitant]
     Active Substance: CALCIUM
  9. GLUCOSAMINE CHONDROITIN [Concomitant]
     Active Substance: CHONDROITIN SULFATE (BOVINE)\GLUCOSAMINE HYDROCHLORIDE

REACTIONS (7)
  - Musculoskeletal pain [None]
  - Pain in extremity [None]
  - Spinal pain [None]
  - Activities of daily living impaired [None]
  - Neck pain [None]
  - Pain [None]
  - Arthralgia [None]

NARRATIVE: CASE EVENT DATE: 201601
